FAERS Safety Report 9604555 (Version 3)
Quarter: 2013Q4

REPORT INFORMATION
  Report Type: Spontaneous
  Country: BR (occurrence: BR)
  Receive Date: 20131008
  Receipt Date: 20131119
  Transmission Date: 20140711
  Serious: Yes (Other)
  Sender: FDA-Public Use
  Company Number: BR-PFIZER INC-2013285154

PATIENT
  Age: 48 Year
  Sex: Female
  Weight: 60 kg

DRUGS (1)
  1. LYRICA [Suspect]
     Indication: PAIN
     Dosage: 75 MG, 2X/DAY (EVERY 12 HOURS)
     Route: 048

REACTIONS (14)
  - Off label use [Recovered/Resolved]
  - Depression [Recovered/Resolved]
  - Conversion disorder [Unknown]
  - Drug hypersensitivity [Not Recovered/Not Resolved]
  - Rash [Unknown]
  - Rash macular [Unknown]
  - Blister [Not Recovered/Not Resolved]
  - Crying [Recovered/Resolved]
  - Drug ineffective for unapproved indication [Unknown]
  - Vascular injury [Recovered/Resolved]
  - Pain in extremity [Recovered/Resolved]
  - Wound [Not Recovered/Not Resolved]
  - Pruritus [Not Recovered/Not Resolved]
  - Scab [Not Recovered/Not Resolved]
